FAERS Safety Report 5812280-6 (Version None)
Quarter: 2008Q3

REPORT INFORMATION
  Report Type: 
  Country: None (occurrence: None)
  Receive Date: 20080716
  Receipt Date: 20080708
  Transmission Date: 20090109
  Serious: Yes (Hospitalization)
  Sender: FDA-Public Use
  Company Number: PHHO2008FR08543

PATIENT
  Sex: Female
  Weight: 102 kg

DRUGS (2)
  1. MYCOPHENOLIC ACID ERL+ [Suspect]
     Indication: RENAL TRANSPLANT
     Dosage: 360 MG, BID
     Route: 048
     Dates: start: 20071025
  2. PROGRAF [Suspect]
     Indication: RENAL TRANSPLANT
     Dosage: 15 MG, BID
     Route: 048
     Dates: start: 20071025

REACTIONS (4)
  - DEHYDRATION [None]
  - GASTROENTERITIS [None]
  - RENAL FAILURE ACUTE [None]
  - WEIGHT DECREASED [None]
